FAERS Safety Report 7112209-7 (Version None)
Quarter: 2010Q4

REPORT INFORMATION
  Report Type: 
  Country: None (occurrence: None)
  Receive Date: 20101119
  Receipt Date: 20100302
  Transmission Date: 20110411
  Serious: No
  Sender: FDA-Public Use
  Company Number: A0849191A

PATIENT
  Sex: Male

DRUGS (2)
  1. AVODART [Suspect]
     Indication: BENIGN PROSTATIC HYPERPLASIA
     Dosage: 1CAP SINGLE DOSE
     Route: 048
     Dates: start: 20100101, end: 20100101
  2. ANTIBIOTIC [Concomitant]

REACTIONS (1)
  - RASH [None]
